FAERS Safety Report 7876252-2 (Version None)
Quarter: 2011Q4

REPORT INFORMATION
  Report Type: 
  Country: None (occurrence: None)
  Receive Date: 20111031
  Receipt Date: 20111025
  Transmission Date: 20120403
  Serious: Yes (Disabling)
  Sender: FDA-Public Use
  Company Number: GB-TEVA-297444ISR

PATIENT
  Age: 8 Decade
  Sex: Female

DRUGS (3)
  1. FELODIPINE [Concomitant]
     Dosage: 5 MILLIGRAM;
     Dates: start: 20070101
  2. ALENDRONATE SODIUM [Concomitant]
  3. SIMVASTATIN [Suspect]
     Dosage: 40 MILLIGRAM; NOCTURNAL
     Route: 048
     Dates: start: 20070412, end: 20110726

REACTIONS (1)
  - HYPOKALAEMIA [None]
